FAERS Safety Report 17729945 (Version 2)
Quarter: 2020Q2

REPORT INFORMATION
  Report Type: Spontaneous
  Country: GB (occurrence: GB)
  Receive Date: 20200430
  Receipt Date: 20200514
  Transmission Date: 20200714
  Serious: Yes (Death, Other)
  Sender: FDA-Public Use
  Company Number: NVSC2020GB116148

PATIENT
  Age: 74 Year
  Sex: Female
  Weight: 65 kg

DRUGS (2)
  1. MYCOPHENOLIC ACID. [Suspect]
     Active Substance: MYCOPHENOLIC ACID
     Indication: OCULAR PEMPHIGOID
     Dosage: 3 G, QD
     Route: 065
     Dates: start: 2017, end: 2019
  2. MYCOPHENOLATE MOFETIL. [Suspect]
     Active Substance: MYCOPHENOLATE MOFETIL
     Indication: OCULAR PEMPHIGOID
     Dosage: 3 G, QD
     Route: 065
     Dates: start: 20150610, end: 2019

REACTIONS (3)
  - Epstein-Barr virus associated lymphoma [Fatal]
  - Non-Hodgkin^s lymphoma [Fatal]
  - Central nervous system lymphoma [Fatal]
